FAERS Safety Report 13336054 (Version 2)
Quarter: 2017Q1

REPORT INFORMATION
  Report Type: Spontaneous
  Country: US (occurrence: US)
  Receive Date: 20170315
  Receipt Date: 20170331
  Transmission Date: 20170428
  Serious: Yes (Death, Hospitalization)
  Sender: FDA-Public Use
  Company Number: US-ROCHE-1906693

PATIENT
  Age: 55 Year
  Sex: Female

DRUGS (2)
  1. ACTEMRA [Suspect]
     Active Substance: TOCILIZUMAB
     Indication: FIBROMYALGIA
     Route: 058
     Dates: start: 20151020, end: 20170107
  2. ACTEMRA [Suspect]
     Active Substance: TOCILIZUMAB
     Indication: RHEUMATOID ARTHRITIS

REACTIONS (2)
  - Myocardial infarction [Unknown]
  - Death [Fatal]

NARRATIVE: CASE EVENT DATE: 20170313
